FAERS Safety Report 9470559 (Version 2)
Quarter: 2013Q3

REPORT INFORMATION
  Report Type: Spontaneous
  Country: US (occurrence: US)
  Receive Date: 20130822
  Receipt Date: 20130910
  Transmission Date: 20140515
  Serious: Yes (Other)
  Sender: FDA-Public Use
  Company Number: US-PFIZER INC-2013241282

PATIENT
  Sex: Female

DRUGS (4)
  1. ADVIL GELCAPS [Suspect]
     Dosage: UNK
  2. CARAFATE [Suspect]
     Dosage: UNK
  3. TYLENOL [Suspect]
     Dosage: UNK
  4. PREVACID [Suspect]
     Indication: GASTROOESOPHAGEAL REFLUX DISEASE
     Dosage: UNK

REACTIONS (5)
  - Upper limb fracture [Unknown]
  - Drug ineffective [Unknown]
  - Muscle spasms [Unknown]
  - Ocular discomfort [Unknown]
  - Flatulence [Unknown]
